FAERS Safety Report 19827484 (Version 2)
Quarter: 2021Q4

REPORT INFORMATION
  Report Type: Spontaneous
  Country: AU (occurrence: AU)
  Receive Date: 20210914
  Receipt Date: 20211014
  Transmission Date: 20220304
  Serious: Yes (Other)
  Sender: FDA-Public Use
  Company Number: None

PATIENT
  Age: 11 Year
  Sex: Female

DRUGS (1)
  1. PIPERACILLIN AND TAZOBACTAM [Suspect]
     Active Substance: PIPERACILLIN SODIUM\TAZOBACTAM SODIUM
     Indication: Infective pulmonary exacerbation of cystic fibrosis
     Route: 042
     Dates: start: 201610

REACTIONS (2)
  - Drug reaction with eosinophilia and systemic symptoms [Unknown]
  - Hepatitis [Unknown]

NARRATIVE: CASE EVENT DATE: 20160101
